FAERS Safety Report 8270730-2 (Version None)
Quarter: 2012Q2

REPORT INFORMATION
  Report Type: 
  Country: None (occurrence: None)
  Receive Date: 20120406
  Receipt Date: 20120323
  Transmission Date: 20120825
  Serious: Yes (Death)
  Sender: FDA-Public Use
  Company Number: 2012-142

PATIENT
  Age: 41 Year
  Sex: Male

DRUGS (1)
  1. CLOZAPINE [Suspect]
     Indication: SCHIZOPHRENIA
     Dosage: MG, QD, ORAL
     Route: 048
     Dates: end: 20110530

REACTIONS (6)
  - CONSTIPATION [None]
  - VOMITING [None]
  - INTESTINAL OBSTRUCTION [None]
  - FALL [None]
  - MYOCARDIAL INFARCTION [None]
  - YELLOW SKIN [None]
